FAERS Safety Report 6105759-3 (Version None)
Quarter: 2009Q1

REPORT INFORMATION
  Report Type: 
  Country: None (occurrence: None)
  Receive Date: 20090304
  Receipt Date: 20090304
  Transmission Date: 20090719
  Serious: Yes (Death)
  Sender: FDA-Public Use
  Company Number: None

PATIENT
  Sex: Male
  Weight: 98.5 kg

DRUGS (2)
  1. INTEGRELIN 0.75 MG/ML SCHERING NDC 00085113601 [Suspect]
     Indication: THERAPEUTIC PROCEDURE
     Dosage: 16 ML/HR CONTINUOUS IV
     Route: 042
     Dates: start: 20090224, end: 20090225
  2. HEPARIN 25000 UNITS/250 ML HOSPIRA NDC 000409765062 [Suspect]
     Indication: THERAPEUTIC PROCEDURE
     Dosage: 11 ML/HR CONTINUOUS IV
     Route: 042
     Dates: start: 20090223, end: 20090225

REACTIONS (2)
  - CARDIAC ARREST [None]
  - HEPARIN-INDUCED THROMBOCYTOPENIA [None]
